FAERS Safety Report 9478249 (Version 5)
Quarter: 2014Q3

REPORT INFORMATION
  Report Type: Spontaneous
  Country: US (occurrence: US)
  Receive Date: 20130827
  Receipt Date: 20140729
  Transmission Date: 20150326
  Serious: Yes (Hospitalization, Other)
  Sender: FDA-Public Use
  Company Number: US-MERCK-1308USA009364

PATIENT
  Sex: Female
  Weight: 113.83 kg

DRUGS (3)
  1. HORMONES (UNSPECIFIED) [Concomitant]
     Active Substance: UNSPECIFIED INGREDIENT
     Dosage: UNK
     Dates: start: 1980, end: 2007
  2. FOSAMAX [Suspect]
     Active Substance: ALENDRONATE SODIUM
     Indication: OSTEOPOROSIS
     Dosage: 70 MG, WEEKLY
     Route: 048
     Dates: end: 20120906
  3. ALENDRONATE SODIUM. [Suspect]
     Active Substance: ALENDRONATE SODIUM
     Indication: OSTEOPOROSIS
     Dosage: 70 MG, WEEKLY
     Route: 048
     Dates: start: 200802

REACTIONS (72)
  - Respiratory failure [Unknown]
  - Cholecystectomy [Unknown]
  - Femur fracture [Unknown]
  - Osteopenia [Unknown]
  - Pulmonary sarcoidosis [Unknown]
  - Rosacea [Unknown]
  - Polypectomy [Unknown]
  - Tendon operation [Unknown]
  - Dental operation [Unknown]
  - Rotator cuff syndrome [Unknown]
  - Blood glucose increased [Unknown]
  - Cardiac murmur [Unknown]
  - Hip arthroplasty [Unknown]
  - Parathyroidectomy [Unknown]
  - Respiratory disorder [Unknown]
  - Atrial fibrillation [Not Recovered/Not Resolved]
  - Asthma [Unknown]
  - Effusion [Unknown]
  - Gout [Unknown]
  - Hypercalcaemia [Unknown]
  - Hiatus hernia [Unknown]
  - Hyperuricaemia [Unknown]
  - Restrictive pulmonary disease [Unknown]
  - Goitre [Unknown]
  - Oedema peripheral [Not Recovered/Not Resolved]
  - Knee arthroplasty [Unknown]
  - Blood glucose increased [Unknown]
  - Type 2 diabetes mellitus [Unknown]
  - Vitamin D deficiency [Unknown]
  - Bronchitis chronic [Not Recovered/Not Resolved]
  - Cardiomegaly [Unknown]
  - Cardiac failure congestive [Unknown]
  - Pyrexia [Unknown]
  - Hyperthyroidism [Unknown]
  - Colon adenoma [Unknown]
  - Intramedullary rod insertion [Unknown]
  - Pneumonia [Unknown]
  - Diabetic hyperglycaemic coma [Unknown]
  - Pulmonary embolism [Unknown]
  - Adverse event [Unknown]
  - Arterial disorder [Unknown]
  - Sleep apnoea syndrome [Unknown]
  - Tooth fracture [Unknown]
  - Productive cough [Unknown]
  - Cataract operation [Unknown]
  - Knee arthroplasty [Unknown]
  - Chronic obstructive pulmonary disease [Not Recovered/Not Resolved]
  - Intervertebral disc degeneration [Unknown]
  - Actinic keratosis [Unknown]
  - Pneumonia [Unknown]
  - Anaemia [Unknown]
  - Adenotonsillectomy [Unknown]
  - Sinusitis [Unknown]
  - Iron deficiency anaemia [Unknown]
  - Chronic obstructive pulmonary disease [Recovered/Resolved]
  - Nail discolouration [Unknown]
  - Gastrooesophageal reflux disease [Unknown]
  - Musculoskeletal pain [Unknown]
  - Femur fracture [Recovered/Resolved]
  - Pneumonia [Unknown]
  - Lymph node calcification [Unknown]
  - Large intestinal haemorrhage [Unknown]
  - Diastasis recti abdominis [Unknown]
  - Bifascicular block [Unknown]
  - Osteoarthritis [Unknown]
  - Hyperparathyroidism [Unknown]
  - Atelectasis [Unknown]
  - Tracheomalacia [Unknown]
  - Respiratory distress [Unknown]
  - Vascular calcification [Unknown]
  - Oedema peripheral [Unknown]
  - Drug ineffective [Unknown]

NARRATIVE: CASE EVENT DATE: 1995
